FAERS Safety Report 7529422-7 (Version None)
Quarter: 2011Q2

REPORT INFORMATION
  Report Type: 
  Country: None (occurrence: None)
  Receive Date: 20110607
  Receipt Date: 20110531
  Transmission Date: 20111010
  Serious: Yes (Life-Threatening)
  Sender: FDA-Public Use
  Company Number: AT-JNJFOC-20110507713

PATIENT
  Age: 66 Year
  Sex: Female

DRUGS (5)
  1. RISPERDAL [Suspect]
     Indication: BIPOLAR DISORDER
     Route: 065
     Dates: start: 20110316, end: 20110329
  2. ZOLPIDEM TARTRATE [Concomitant]
     Indication: PSYCHIATRIC SYMPTOM
     Route: 065
  3. TRAZODONE HCL [Concomitant]
     Indication: PSYCHIATRIC SYMPTOM
     Route: 065
     Dates: start: 20110317
  4. TRUXAL [Concomitant]
     Indication: PSYCHIATRIC SYMPTOM
     Route: 065
     Dates: end: 20110316
  5. DEPAKENE [Concomitant]
     Indication: PSYCHIATRIC SYMPTOM
     Route: 065

REACTIONS (1)
  - EXTRAPYRAMIDAL DISORDER [None]
